FAERS Safety Report 19413877 (Version 2)
Quarter: 2021Q2

REPORT INFORMATION
  Report Type: Spontaneous
  Country: US (occurrence: US)
  Receive Date: 20210614
  Receipt Date: 20210625
  Transmission Date: 20210717
  Serious: Yes (Hospitalization, Other)
  Sender: FDA-Public Use
  Company Number: US-JAZZ-2021-US-010582

PATIENT
  Age: 34 Year
  Sex: Female

DRUGS (1)
  1. XYREM [Suspect]
     Active Substance: SODIUM OXYBATE
     Indication: PRODUCT USED FOR UNKNOWN INDICATION
     Dosage: UNKNOWN DOSE AND UNKNOWN FREQUENCY
     Route: 048

REACTIONS (11)
  - Vomiting [Recovered/Resolved]
  - Blood creatinine increased [Recovered/Resolved]
  - Renal disorder [Recovered/Resolved]
  - Overdose [Unknown]
  - Myoglobinuria [Recovered/Resolved]
  - Nervous system disorder [Recovered/Resolved]
  - Depressed level of consciousness [Recovered/Resolved]
  - Abnormal behaviour [Recovering/Resolving]
  - Blood pressure increased [Not Recovered/Not Resolved]
  - Colitis [Recovering/Resolving]
  - Haemoglobinuria [Recovered/Resolved]

NARRATIVE: CASE EVENT DATE: 202105
